FAERS Safety Report 10367814 (Version 1)
Quarter: 2014Q3

REPORT INFORMATION
  Report Type: Spontaneous
  Country: IT (occurrence: None)
  Receive Date: 20140805
  Receipt Date: 20140805
  Transmission Date: 20150326
  Serious: Yes (Hospitalization)
  Sender: FDA-Public Use
  Company Number: AUR-APL-2014-08249

PATIENT
  Age: 87 Year
  Sex: Female

DRUGS (7)
  1. ZYLORIC (ALLOPURINOL) TABLET [Concomitant]
     Active Substance: ALLOPURINOL
  2. AMOXICILLIN (AMOXICILLIN) UNKNOWN, UNKNOWN [Suspect]
     Active Substance: AMOXICILLIN
     Indication: TOOTH ABSCESS
     Dosage: 3 GM, TOTAL, ORAL
     Route: 048
     Dates: start: 20140711, end: 20140721
  3. ATENOLOL ABC (ATENOLOL) [Concomitant]
  4. LAEVOLAC (LACTULOSE) SYRUP [Concomitant]
  5. EUTIROX (LEVOTHYROXINE SODIUM) [Concomitant]
     Active Substance: LEVOTHYROXINE SODIUM
  6. ALENDRONATE (ALENDRONATE SODIUM) TABLET [Concomitant]
  7. CARDIOASPIRIN (ACETYLSALICYLIC ACID) GASTRO-RESISTANT TABLET) [Concomitant]

REACTIONS (2)
  - Pruritus [None]
  - Erythema [None]

NARRATIVE: CASE EVENT DATE: 20140721
